FAERS Safety Report 5817312-7 (Version None)
Quarter: 2008Q3

REPORT INFORMATION
  Report Type: 
  Country: None (occurrence: None)
  Receive Date: 20080722
  Receipt Date: 20080717
  Transmission Date: 20090109
  Serious: Yes (Hospitalization)
  Sender: FDA-Public Use
  Company Number: B0529980A

PATIENT
  Age: 46 Year
  Sex: Female

DRUGS (5)
  1. DARAPRIM [Suspect]
     Indication: CEREBRAL TOXOPLASMOSIS
     Dosage: 50MG PER DAY
     Route: 048
     Dates: start: 20080402, end: 20080603
  2. EFAVIRENZ [Suspect]
     Indication: HIV INFECTION
     Route: 048
     Dates: start: 20080513, end: 20080603
  3. TRUVADA [Suspect]
     Indication: HIV INFECTION
     Route: 048
     Dates: start: 20080513
  4. SULPHADIAZINE [Suspect]
     Indication: CEREBRAL TOXOPLASMOSIS
     Dosage: 1000MG FOUR TIMES PER DAY
     Route: 048
     Dates: start: 20080402, end: 20080525
  5. DEXAMETHASONE [Concomitant]
     Indication: CEREBRAL TOXOPLASMOSIS
     Dosage: 24MG PER DAY
     Route: 042
     Dates: start: 20080402

REACTIONS (1)
  - AGRANULOCYTOSIS [None]
